FAERS Safety Report 9624760 (Version 1)
Quarter: 2013Q4

REPORT INFORMATION
  Report Type: Spontaneous
  Country: US (occurrence: US)
  Receive Date: 20131015
  Receipt Date: 20131015
  Transmission Date: 20140711
  Serious: No
  Sender: FDA-Public Use
  Company Number: US-B.I. PHARMACEUTICALS,INC./RIDGEFIELD-2013-BI-31477BP

PATIENT
  Age: 88 Year
  Sex: Male

DRUGS (3)
  1. PRADAXA [Suspect]
     Indication: ATRIAL FIBRILLATION
     Dosage: 150 MG
     Route: 048
     Dates: start: 20130927
  2. AMIODARONE [Concomitant]
     Dosage: 200 MG
     Route: 048
  3. ATORVASTATIN [Concomitant]
     Dosage: 10 MG
     Route: 048

REACTIONS (1)
  - Nausea [Not Recovered/Not Resolved]
